FAERS Safety Report 4938136-9 (Version None)
Quarter: 2006Q1

REPORT INFORMATION
  Report Type: 
  Country: None (occurrence: None)
  Receive Date: 20060309
  Receipt Date: 20060227
  Transmission Date: 20060701
  Serious: Yes (Life-Threatening, Other)
  Sender: FDA-Public Use
  Company Number: GB-JNJFOC-20060300015

PATIENT
  Age: 5 Decade
  Sex: Male

DRUGS (6)
  1. RISPERDAL [Suspect]
     Indication: SCHIZOPHRENIA
     Route: 065
  2. CLOZAPINE [Suspect]
     Indication: SCHIZOPHRENIA
     Dosage: DOSE BEING TAPERED
  3. HALOPERIDOL [Concomitant]
     Indication: AGITATION
     Route: 030
  4. PROCYCLIDINE HYDROCHLORIDE 2MG TAB [Concomitant]
  5. LORAZEPAM [Concomitant]
     Indication: AGITATION
  6. OMEPRAZOLE [Concomitant]
     Dosage: TAKEN AM

REACTIONS (1)
  - NEUTROPENIA [None]
